FAERS Safety Report 8711473 (Version 3)
Quarter: 2012Q4

REPORT INFORMATION
  Report Type: 
  Country: JP (occurrence: JP)
  Receive Date: 20120807
  Receipt Date: 20121114
  Transmission Date: 20130627
  Serious: Yes (Hospitalization)
  Sender: FDA-Public Use
  Company Number: JP-TEVA-351893USA

PATIENT
  Age: 76 Year
  Sex: Male
  Weight: 58 kg

DRUGS (6)
  1. TREANDA [Suspect]
     Indication: MANTLE CELL LYMPHOMA
     Dosage: regimen 1 + 2
     Route: 042
     Dates: start: 20110831, end: 20110901
  2. TREANDA [Suspect]
     Dosage: regimen #
     Route: 042
     Dates: start: 20121115, end: 20111116
  3. SULFAMETHOXAZOLE W/TRIMETHOPRIM [Concomitant]
     Indication: PROPHYLAXIS
     Dates: start: 20110927, end: 20120214
  4. ACICLOVIR [Concomitant]
     Indication: PROPHYLAXIS
     Dosage: 200 Milligram Daily;
     Dates: start: 20111115, end: 20120214
  5. ALLOPURINOL [Concomitant]
     Indication: PROPHYLAXIS
     Dosage: 100 Milligram Daily;
     Dates: start: 20110823, end: 20120214
  6. LANSOPRAZOLE [Concomitant]
     Indication: PROPHYLAXIS
     Dosage: 15 Milligram Daily;
     Dates: start: 20110823, end: 20111212

REACTIONS (3)
  - Agranulocytosis [Recovered/Resolved]
  - Sepsis [Recovered/Resolved]
  - Pyrexia [Unknown]
